FAERS Safety Report 23289470 (Version 1)
Quarter: 2023Q4

REPORT INFORMATION
  Report Type: Spontaneous
  Country: US (occurrence: US)
  Receive Date: 20231212
  Receipt Date: 20231212
  Transmission Date: 20240110
  Serious: No
  Sender: FDA-Public Use
  Company Number: US-Emergent Biosolutions-23000531

PATIENT

DRUGS (2)
  1. NARCAN [Suspect]
     Active Substance: NALOXONE HYDROCHLORIDE
     Indication: Product used for unknown indication
     Dosage: UNK
     Route: 065
  2. NARCAN [Suspect]
     Active Substance: NALOXONE HYDROCHLORIDE
     Dosage: UNK
     Route: 065

REACTIONS (1)
  - Product expiration date issue [Unknown]

NARRATIVE: CASE EVENT DATE: 20220726
